FAERS Safety Report 15415121 (Version 1)
Quarter: 2018Q3

REPORT INFORMATION
  Report Type: Spontaneous
  Country: US (occurrence: US)
  Receive Date: 20180921
  Receipt Date: 20180921
  Transmission Date: 20181010
  Serious: Yes (Other)
  Sender: FDA-Public Use
  Company Number: US-IMPAX LABORATORIES, INC-2018-IPXL-03042

PATIENT
  Age: 46 Year
  Sex: Male
  Weight: 104 kg

DRUGS (4)
  1. EMVERM [Suspect]
     Active Substance: MEBENDAZOLE
     Dosage: 100 MG 2 TABLETS, ONCE A DAY
     Route: 048
     Dates: start: 201808, end: 201809
  2. ALBENZA [Suspect]
     Active Substance: ALBENDAZOLE
     Indication: PRODUCT USE IN UNAPPROVED INDICATION
     Dosage: 200 MG 4 TABLETS, DAILY
     Route: 048
  3. EMVERM [Suspect]
     Active Substance: MEBENDAZOLE
     Indication: HOOKWORM INFECTION
     Dosage: 100 MG 1 TABLET
     Route: 048
     Dates: start: 2017
  4. ALBENZA [Suspect]
     Active Substance: ALBENDAZOLE
     Indication: HOOKWORM INFECTION
     Dosage: 200 MG, UNK
     Route: 048
     Dates: start: 2018

REACTIONS (4)
  - Drug effect incomplete [Not Recovered/Not Resolved]
  - Drug administration error [Unknown]
  - Weight increased [Not Recovered/Not Resolved]
  - Drug ineffective for unapproved indication [Unknown]

NARRATIVE: CASE EVENT DATE: 2018
